FAERS Safety Report 25535244 (Version 2)
Quarter: 2025Q3

REPORT INFORMATION
  Report Type: Spontaneous
  Country: US (occurrence: US)
  Receive Date: 20250709
  Receipt Date: 20250826
  Transmission Date: 20251020
  Serious: No
  Sender: DR REDDYS
  Company Number: US-E2BLSMVVAL-USA/2025/06/009232

PATIENT
  Age: 44 Year
  Sex: Female

DRUGS (1)
  1. LENALIDOMIDE [Suspect]
     Active Substance: LENALIDOMIDE
     Indication: Plasma cell myeloma
     Dosage: 14 EVERY 28 DAY
     Route: 065

REACTIONS (1)
  - Human chorionic gonadotropin increased [Unknown]
